FAERS Safety Report 16843128 (Version 1)
Quarter: 2019Q3

REPORT INFORMATION
  Report Type: Spontaneous
  Country: US (occurrence: US)
  Receive Date: 20190924
  Receipt Date: 20190924
  Transmission Date: 20191005
  Serious: No
  Sender: FDA-Public Use
  Company Number: US-ALLERGAN-1900616US

PATIENT
  Age: 23 Year
  Sex: Female

DRUGS (4)
  1. PHENTERMINE. [Concomitant]
     Active Substance: PHENTERMINE
     Indication: WEIGHT DECREASED
     Dosage: 35 MG, QD
     Route: 065
  2. COCAINE [Concomitant]
     Active Substance: COCAINE
     Dosage: UNK (ABUSE)
     Route: 065
  3. LEXAPRO [Suspect]
     Active Substance: ESCITALOPRAM OXALATE
     Indication: PRODUCT USED FOR UNKNOWN INDICATION
     Dosage: 10 MG, QD
     Route: 065
     Dates: start: 2017
  4. VRAYLAR [Concomitant]
     Active Substance: CARIPRAZINE
     Dosage: 3 MG, QD
     Route: 065
     Dates: start: 201810

REACTIONS (1)
  - Product dose omission [Unknown]
